FAERS Safety Report 9489970 (Version 1)
Quarter: 2013Q3

REPORT INFORMATION
  Report Type: Report from Study
  Country: VE (occurrence: VE)
  Receive Date: 20130829
  Receipt Date: 20130829
  Transmission Date: 20140515
  Serious: Yes (Other)
  Sender: FDA-Public Use
  Company Number: VE-ABBOTT-13P-178-1139343-00

PATIENT
  Sex: Male
  Weight: 120 kg

DRUGS (2)
  1. HUMIRA [Suspect]
     Indication: PSORIASIS
     Route: 058
     Dates: start: 20100713, end: 2011
  2. METROTREXATE [Concomitant]
     Indication: PSORIASIS
     Route: 048

REACTIONS (2)
  - Angina unstable [Recovered/Resolved]
  - Hypertension [Unknown]
